FAERS Safety Report 21954839 (Version 1)
Quarter: 2023Q1

REPORT INFORMATION
  Report Type: Report from Study
  Country: BE (occurrence: BE)
  Receive Date: 20230205
  Receipt Date: 20230205
  Transmission Date: 20230418
  Serious: Yes (Death)
  Sender: FDA-Public Use
  Company Number: BE-ABBVIE-4294569

PATIENT
  Sex: Female
  Weight: 45 kg

DRUGS (11)
  1. CARBIDOPA\LEVODOPA [Suspect]
     Active Substance: CARBIDOPA\LEVODOPA
     Indication: Parkinson^s disease
     Dosage: MD: 1.5 ML, CD: 2.1 ML/HR DURING 16 HOURS, ED: 1.6 ML
     Route: 050
     Dates: start: 20220912
  2. CARBIDOPA\LEVODOPA [Suspect]
     Active Substance: CARBIDOPA\LEVODOPA
     Route: 050
     Dates: start: 20200811
  3. Prolopa 250 mg [Concomitant]
     Indication: Product used for unknown indication
     Dosage: 1/2 TABLET, AT 07:00, 11:00, 15:00 AND 19:00 HRS
  4. MAGNESIUM [Concomitant]
     Active Substance: MAGNESIUM
     Indication: Product used for unknown indication
  5. TREHALOSE [Concomitant]
     Active Substance: TREHALOSE
     Indication: Product used for unknown indication
  6. Mometasone 50 units [Concomitant]
     Indication: Product used for unknown indication
  7. RIVOTRIL [Concomitant]
     Active Substance: CLONAZEPAM
     Indication: Product used for unknown indication
     Dosage: 0.5 MG
  8. L-thyroxine 75 units [Concomitant]
     Indication: Product used for unknown indication
  9. AZILECT [Concomitant]
     Active Substance: RASAGILINE MESYLATE
     Indication: Product used for unknown indication
     Dosage: AT 07:00 HOURS
  10. CALCIUM\CHOLECALCIFEROL [Concomitant]
     Active Substance: CALCIUM\CHOLECALCIFEROL
     Indication: Product used for unknown indication
  11. Comtan 200 mg [Concomitant]
     Indication: Product used for unknown indication
     Dosage: AT 07:00 AND 19:00 HRS

REACTIONS (1)
  - Death [Fatal]
